FAERS Safety Report 19177836 (Version 2)
Quarter: 2021Q2

REPORT INFORMATION
  Report Type: Spontaneous
  Country: US (occurrence: US)
  Receive Date: 20210426
  Receipt Date: 20210601
  Transmission Date: 20210717
  Serious: No
  Sender: FDA-Public Use
  Company Number: US-AMGEN-USASP2021060515

PATIENT
  Sex: Male

DRUGS (6)
  1. ENBREL [Suspect]
     Active Substance: ETANERCEPT
     Dosage: 50 MILLIGRAM, QWK
     Route: 058
  2. MELOXICAM. [Concomitant]
     Active Substance: MELOXICAM
     Dosage: 15 MILLIGRAM
  3. ALLOPURINOL. [Concomitant]
     Active Substance: ALLOPURINOL
     Dosage: 100 MILLIGRAM
  4. OXYCONTIN [Concomitant]
     Active Substance: OXYCODONE HYDROCHLORIDE
     Dosage: 20 MILLIGRAM
  5. XTAMPZA ER [Concomitant]
     Active Substance: OXYCODONE
     Dosage: 36 MILLIGRAM
  6. ENBREL [Suspect]
     Active Substance: ETANERCEPT
     Indication: TOBACCO USER
     Dosage: 50 MILLIGRAM
     Route: 065

REACTIONS (2)
  - Decreased appetite [Unknown]
  - Off label use [Unknown]
